FAERS Safety Report 17362923 (Version 1)
Quarter: 2020Q1

REPORT INFORMATION
  Report Type: Spontaneous
  Country: DE (occurrence: DE)
  Receive Date: 20200203
  Receipt Date: 20200203
  Transmission Date: 20200409
  Serious: Yes (Hospitalization, Other)
  Sender: FDA-Public Use
  Company Number: DE-ELI_LILLY_AND_COMPANY-DE202001010437

PATIENT
  Sex: Male
  Weight: 100 kg

DRUGS (4)
  1. OLIMEL [Suspect]
     Active Substance: AMINO ACIDS\DEXTROSE\SOYBEAN OIL
     Indication: PARENTERAL NUTRITION
     Dosage: 2000 ML, OTHER
     Route: 065
     Dates: start: 20191021
  2. OLIMEL [Suspect]
     Active Substance: AMINO ACIDS\DEXTROSE\SOYBEAN OIL
     Indication: PARENTERAL NUTRITION
     Dosage: UNK UNK, UNKNOWN
     Route: 065
     Dates: start: 20190920, end: 20191020
  3. GEMCITABINE HYDROCHLORIDE. [Suspect]
     Active Substance: GEMCITABINE HYDROCHLORIDE
     Indication: CHEMOTHERAPY
     Dosage: EVERY 14 DAYS ON DAY 1
     Route: 065
  4. CARBOPLATIN. [Suspect]
     Active Substance: CARBOPLATIN
     Indication: CHEMOTHERAPY
     Dosage: EVERY 14 DAYS ON DAY 1
     Route: 065

REACTIONS (12)
  - Muscle spasticity [Unknown]
  - Nausea [Unknown]
  - Urinary tract infection [Unknown]
  - Restlessness [Unknown]
  - Urinary tract infection [Unknown]
  - Pleural effusion [Unknown]
  - Urosepsis [Unknown]
  - Urosepsis [Unknown]
  - Blood albumin decreased [Unknown]
  - Dizziness [Unknown]
  - Pain [Unknown]
  - Decubitus ulcer [Unknown]

NARRATIVE: CASE EVENT DATE: 2019
